FAERS Safety Report 9390464 (Version 1)
Quarter: 2013Q2

REPORT INFORMATION
  Report Type: Spontaneous
  Country: US (occurrence: None)
  Receive Date: 20130624
  Receipt Date: 20130624
  Transmission Date: 20140414
  Serious: Yes (Other)
  Sender: FDA-Public Use
  Company Number: 2013036559

PATIENT
  Age: 61 Year
  Sex: Female

DRUGS (1)
  1. CARIMUNE [Suspect]
     Indication: PEMPHIGOID
     Dosage: 140 G TOTAL, OVER 14 HOURS INTRAVENOUS (NOT OTHEWISE SPECIFED)
     Route: 042

REACTIONS (3)
  - Renal failure acute [None]
  - Off label use [None]
  - Dialysis [None]
